FAERS Safety Report 21399489 (Version 1)
Quarter: 2022Q4

REPORT INFORMATION
  Report Type: Spontaneous
  Country: DE (occurrence: DE)
  Receive Date: 20221001
  Receipt Date: 20221001
  Transmission Date: 20230113
  Serious: Yes (Other)
  Sender: FDA-Public Use
  Company Number: DE-NOVARTISPH-NVSC2022DE221962

PATIENT
  Sex: Male

DRUGS (1)
  1. COSENTYX [Suspect]
     Active Substance: SECUKINUMAB
     Indication: Psoriasis
     Dosage: 300 MG, EVERY 6 WEEKS
     Route: 065

REACTIONS (3)
  - Gamma-glutamyltransferase increased [Unknown]
  - Liver function test increased [Unknown]
  - Inappropriate schedule of product administration [Unknown]
